FAERS Safety Report 25286841 (Version 1)
Quarter: 2025Q2

REPORT INFORMATION
  Report Type: Spontaneous
  Country: CN (occurrence: CN)
  Receive Date: 20250509
  Receipt Date: 20250509
  Transmission Date: 20250716
  Serious: Yes (Life-Threatening, Hospitalization, Other)
  Sender: Steriscience PTE
  Company Number: CN-STERISCIENCE B.V.-2025-ST-000882

PATIENT
  Age: 3 Year
  Sex: Female

DRUGS (6)
  1. VANCOMYCIN [Suspect]
     Active Substance: VANCOMYCIN
     Indication: Antibiotic prophylaxis
     Dosage: 15 MILLIGRAM/KILOGRAM, Q6H
     Route: 065
  2. MEROPENEM [Suspect]
     Active Substance: MEROPENEM
     Indication: Antibiotic prophylaxis
     Dosage: 20 MILLIGRAM/KILOGRAM, Q8H
     Route: 065
  3. IMIPENEM [Suspect]
     Active Substance: IMIPENEM
     Indication: Antibiotic prophylaxis
     Dosage: 15 MILLIGRAM/KILOGRAM, Q6H
     Route: 065
  4. LINEZOLID [Suspect]
     Active Substance: LINEZOLID
     Indication: Antibiotic prophylaxis
     Dosage: 10 MILLIGRAM/KILOGRAM, Q8H
     Route: 065
  5. VORICONAZOLE [Concomitant]
     Active Substance: VORICONAZOLE
     Indication: Mucormycosis
     Route: 065
  6. Anfotericina b liposomal [Concomitant]
     Indication: Mucormycosis
     Route: 065

REACTIONS (3)
  - Respiratory failure [None]
  - Septic shock [None]
  - Drug ineffective [Unknown]
